FAERS Safety Report 17506550 (Version 1)
Quarter: 2020Q1

REPORT INFORMATION
  Report Type: Spontaneous
  Country: GB (occurrence: GB)
  Receive Date: 20200306
  Receipt Date: 20200306
  Transmission Date: 20200409
  Serious: Yes (Other)
  Sender: FDA-Public Use
  Company Number: GB-TEVA-2020-GB-1194925

PATIENT
  Age: 33 Year
  Sex: Male
  Weight: 67 kg

DRUGS (8)
  1. CHLORDIAZEPOXIDE. [Concomitant]
     Active Substance: CHLORDIAZEPOXIDE
     Indication: ILL-DEFINED DISORDER
     Dosage: VARIABLE DOSE
     Dates: start: 20191216, end: 20191227
  2. THIAMINE. [Concomitant]
     Active Substance: THIAMINE
     Indication: ILL-DEFINED DISORDER
     Dosage: TO BE TAKEN TWICE DAILY
     Dates: start: 20191218, end: 20200101
  3. PARACETAMOL [Concomitant]
     Active Substance: ACETAMINOPHEN
     Indication: ILL-DEFINED DISORDER
     Dosage: 1-2 TABLET
     Dates: start: 20200107
  4. CO-AMOXICLAV [Concomitant]
     Active Substance: AMOXICILLIN\CLAVULANATE POTASSIUM
     Indication: ILL-DEFINED DISORDER
     Dosage: 1 TABLET TO BE TAKEN THREE TIMES DAILY
     Dates: start: 20191219, end: 20191224
  5. IBUPROFEN. [Concomitant]
     Active Substance: IBUPROFEN
     Indication: ILL-DEFINED DISORDER
     Dosage: 2 TABLET
     Dates: start: 20191229, end: 20191229
  6. LANSOPRAZOLE. [Concomitant]
     Active Substance: LANSOPRAZOLE
     Indication: ILL-DEFINED DISORDER
     Dosage: 1 CAPSULE
     Dates: start: 20191219
  7. NAPROXEN. [Suspect]
     Active Substance: NAPROXEN
     Dosage: 250 MILLIGRAM
     Route: 065
     Dates: start: 20200106
  8. METHADONE [Concomitant]
     Active Substance: METHADONE HYDROCHLORIDE
     Indication: ILL-DEFINED DISORDER
     Dosage: 60 ML
     Dates: start: 20200103

REACTIONS (3)
  - Throat tightness [Unknown]
  - Dyspnoea [Recovered/Resolved]
  - Dyspnoea [Unknown]

NARRATIVE: CASE EVENT DATE: 20200107
